FAERS Safety Report 24022719 (Version 2)
Quarter: 2024Q2

REPORT INFORMATION
  Report Type: Report from Study
  Country: CN (occurrence: CN)
  Receive Date: 20240627
  Receipt Date: 20240628
  Transmission Date: 20240716
  Serious: No
  Sender: FDA-Public Use
  Company Number: CN-ROCHE-3202234

PATIENT
  Age: 67 Year
  Sex: Female
  Weight: 66.0 kg

DRUGS (2)
  1. ALECENSA [Suspect]
     Active Substance: ALECTINIB HYDROCHLORIDE
     Indication: Lung neoplasm malignant
     Dosage: 150MG*56CAPSULE*4BOX
     Route: 048
     Dates: start: 20220414
  2. ALECENSA [Suspect]
     Active Substance: ALECTINIB HYDROCHLORIDE
     Dosage: 150MG*56CAPSULE*4BOX, CAPSULE
     Route: 048

REACTIONS (9)
  - Constipation [Not Recovered/Not Resolved]
  - Blood glucose increased [Recovering/Resolving]
  - Blood uric acid increased [Recovering/Resolving]
  - Weight increased [Unknown]
  - Heart rate decreased [Unknown]
  - Bone pain [Recovering/Resolving]
  - Pain [Not Recovered/Not Resolved]
  - Arthralgia [Recovering/Resolving]
  - Oedema peripheral [Recovering/Resolving]
